FAERS Safety Report 6806756-2 (Version None)
Quarter: 2010Q2

REPORT INFORMATION
  Report Type: 
  Country: None (occurrence: None)
  Receive Date: 20100629
  Receipt Date: 20080709
  Transmission Date: 20101027
  Serious: Yes (Other)
  Sender: FDA-Public Use
  Company Number: US-PFIZER INC-2008039854

PATIENT
  Sex: Female
  Weight: 52.2 kg

DRUGS (2)
  1. ZYVOX [Suspect]
     Indication: INFECTION
     Dosage: INTERVAL: EVERYDAY
     Route: 048
     Dates: start: 20051101, end: 20070301
  2. DRUG, UNSPECIFIED [Concomitant]

REACTIONS (3)
  - BLINDNESS [None]
  - NEUROPATHY PERIPHERAL [None]
  - OPTIC NEUROPATHY [None]
